FAERS Safety Report 9856449 (Version 1)
Quarter: 2014Q1

REPORT INFORMATION
  Report Type: Spontaneous
  Country: TR (occurrence: TR)
  Receive Date: 20140130
  Receipt Date: 20140130
  Transmission Date: 20141002
  Serious: Yes (Death, Other)
  Sender: FDA-Public Use
  Company Number: TR-JNJFOC-20140112482

PATIENT
  Age: 36 Year
  Sex: Male

DRUGS (2)
  1. DOXORUBICIN [Suspect]
     Indication: FIBROSARCOMA
     Route: 042
  2. CISPLATIN [Suspect]
     Indication: FIBROSARCOMA
     Route: 065

REACTIONS (2)
  - Fibrosarcoma metastatic [Fatal]
  - Off label use [Unknown]
